FAERS Safety Report 9200601 (Version 1)
Quarter: 2013Q1

REPORT INFORMATION
  Report Type: Spontaneous
  Country: SE (occurrence: SE)
  Receive Date: 20130329
  Receipt Date: 20130329
  Transmission Date: 20140127
  Serious: Yes (Hospitalization)
  Sender: FDA-Public Use
  Company Number: SE-PFIZER INC-2007334773

PATIENT
  Age: 28 Year
  Sex: Male

DRUGS (1)
  1. IPREN [Suspect]
     Indication: VIRAL INFECTION
     Dosage: 400 MG
     Route: 048
     Dates: start: 20070808, end: 20070808

REACTIONS (4)
  - Lethargy [Recovered/Resolved]
  - Nausea [Recovered/Resolved]
  - Vomiting [Recovered/Resolved]
  - Pruritus [Recovered/Resolved]
